FAERS Safety Report 14065498 (Version 3)
Quarter: 2018Q3

REPORT INFORMATION
  Report Type: Spontaneous
  Country: US (occurrence: US)
  Receive Date: 20171009
  Receipt Date: 20180716
  Transmission Date: 20181010
  Serious: No
  Sender: FDA-Public Use
  Company Number: US-PFIZER INC-2017431777

PATIENT
  Sex: Female
  Weight: 57 kg

DRUGS (1)
  1. ADVIL [Suspect]
     Active Substance: IBUPROFEN
     Indication: PROCEDURAL PAIN
     Dosage: 400 MG, 2X/DAY
     Route: 048
     Dates: start: 20170929, end: 20171003

REACTIONS (6)
  - Product quality issue [Unknown]
  - Malaise [Unknown]
  - Foreign body in respiratory tract [Unknown]
  - Product preparation error [Unknown]
  - Poor quality drug administered [Unknown]
  - Throat irritation [Recovering/Resolving]

NARRATIVE: CASE EVENT DATE: 20170929
